FAERS Safety Report 5143293-8 (Version None)
Quarter: 2006Q4

REPORT INFORMATION
  Report Type: 
  Country: None (occurrence: None)
  Receive Date: 20061103
  Receipt Date: 20061025
  Transmission Date: 20070319
  Serious: Yes (Hospitalization)
  Sender: FDA-Public Use
  Company Number: 2006AP05170

PATIENT
  Age: 70 Year
  Sex: Female
  Weight: 39 kg

DRUGS (4)
  1. DIPRIVAN [Suspect]
     Indication: MAINTENANCE OF ANAESTHESIA
     Route: 042
  2. ANTI-HYPERTENSIVES [Concomitant]
     Indication: HYPERTENSION
     Route: 048
  3. MIDAZOLAM [Concomitant]
     Indication: INDUCTION OF ANAESTHESIA
  4. FENTANYL CITRATE [Concomitant]
     Indication: INDUCTION OF ANAESTHESIA

REACTIONS (2)
  - SWELLING FACE [None]
  - TONGUE OEDEMA [None]
